FAERS Safety Report 17143501 (Version 1)
Quarter: 2019Q4

REPORT INFORMATION
  Report Type: Spontaneous
  Country: ES (occurrence: ES)
  Receive Date: 20191211
  Receipt Date: 20191211
  Transmission Date: 20200122
  Serious: Yes (Hospitalization)
  Sender: FDA-Public Use
  Company Number: ES-AMERICAN REGENT INC-20191091

PATIENT
  Sex: Male

DRUGS (1)
  1. VENOFER [Suspect]
     Active Substance: IRON SUCROSE
     Indication: DUODENAL ULCER HAEMORRHAGE
     Dosage: 20MG/ML (5X5ML VIALS)(500MG)
     Dates: start: 20180625

REACTIONS (2)
  - Infusion site phlebitis [Unknown]
  - Off label use [Unknown]

NARRATIVE: CASE EVENT DATE: 20180625
